FAERS Safety Report 7676479-9 (Version None)
Quarter: 2011Q3

REPORT INFORMATION
  Report Type: 
  Country: None (occurrence: None)
  Receive Date: 20110809
  Receipt Date: 20110809
  Transmission Date: 20111222
  Serious: Yes (Hospitalization)
  Sender: FDA-Public Use
  Company Number: None

PATIENT
  Sex: Male
  Weight: 78.7 kg

DRUGS (2)
  1. CARBOPLATIN [Suspect]
     Dosage: 1905 MG
     Dates: end: 20110601
  2. TAXOL [Suspect]
     Dosage: 647 MG
     Dates: end: 20110601

REACTIONS (4)
  - SUPRAVENTRICULAR TACHYCARDIA [None]
  - CHEST X-RAY ABNORMAL [None]
  - DYSPNOEA [None]
  - HYPOXIA [None]
